FAERS Safety Report 14788942 (Version 1)
Quarter: 2018Q2

REPORT INFORMATION
  Report Type: Spontaneous
  Country: FR (occurrence: FR)
  Receive Date: 20180423
  Receipt Date: 20180423
  Transmission Date: 20180711
  Serious: Yes (Other)
  Sender: FDA-Public Use
  Company Number: FR-MERCK KGAA-2046260

PATIENT
  Age: 57 Year
  Sex: Female

DRUGS (1)
  1. NOVOTHYROX [Suspect]
     Active Substance: LEVOTHYROXINE SODIUM
     Indication: PRODUCT USED FOR UNKNOWN INDICATION

REACTIONS (29)
  - Gait disturbance [None]
  - Hot flush [None]
  - Myalgia [None]
  - Somnolence [None]
  - Pain [None]
  - C-reactive protein increased [None]
  - High density lipoprotein decreased [None]
  - Hyperglycaemia [None]
  - Blood triglycerides increased [None]
  - Headache [None]
  - Depressed mood [None]
  - Gamma-glutamyltransferase increased [None]
  - Blood cholesterol increased [None]
  - Mood swings [None]
  - Rheumatoid factor increased [None]
  - Partner stress [None]
  - Fatigue [None]
  - Mood altered [None]
  - Memory impairment [None]
  - Irritability [None]
  - Crying [None]
  - Red blood cell sedimentation rate increased [None]
  - Blood thyroid stimulating hormone increased [None]
  - Asthenia [None]
  - Glycosylated haemoglobin increased [None]
  - Total cholesterol/HDL ratio increased [None]
  - Low density lipoprotein increased [None]
  - Loss of personal independence in daily activities [None]
  - Insomnia [None]

NARRATIVE: CASE EVENT DATE: 20170724
